FAERS Safety Report 8966424 (Version 2)
Quarter: 2013Q1

REPORT INFORMATION
  Report Type: Spontaneous
  Country: US (occurrence: US)
  Receive Date: 20121217
  Receipt Date: 20130116
  Transmission Date: 20140127
  Serious: No
  Sender: FDA-Public Use
  Company Number: US-ELI_LILLY_AND_COMPANY-US201212002210

PATIENT
  Sex: Female

DRUGS (2)
  1. CYMBALTA [Suspect]
     Indication: FIBROMYALGIA
     Dosage: UNK, QD
     Dates: start: 201012, end: 20120706
  2. TRAZODONE [Concomitant]

REACTIONS (9)
  - Amnesia [Unknown]
  - Cognitive disorder [Unknown]
  - Haematuria [Unknown]
  - Fibromyalgia [Unknown]
  - Fear [Unknown]
  - Confusional state [Unknown]
  - Dizziness [Unknown]
  - Headache [Recovered/Resolved]
  - Crying [Unknown]
